FAERS Safety Report 5573165-6 (Version None)
Quarter: 2007Q4

REPORT INFORMATION
  Report Type: 
  Country: None (occurrence: None)
  Receive Date: 20071224
  Receipt Date: 20071219
  Transmission Date: 20080405
  Serious: Yes (Life-Threatening, Other)
  Sender: FDA-Public Use
  Company Number: ES-BAYER-200718120GPV

PATIENT
  Sex: Male

DRUGS (1)
  1. ULTRAVIST 370 MG I/ML (IOPROMIDE) [Suspect]
     Indication: ARTERIOGRAM CORONARY
     Route: 042
     Dates: start: 20071212, end: 20071212

REACTIONS (1)
  - VENTRICULAR FIBRILLATION [None]
